FAERS Safety Report 20721652 (Version 1)
Quarter: 2022Q2

REPORT INFORMATION
  Report Type: Other
  Country: SE (occurrence: SE)
  Receive Date: 20220418
  Receipt Date: 20220418
  Transmission Date: 20220721
  Serious: Yes (Hospitalization, Other)
  Sender: FDA-Public Use
  Company Number: SE-DENTSPLY-2022SCDP000092

PATIENT
  Age: 57 Year
  Sex: Female

DRUGS (2)
  1. EPINEPHRINE\PRILOCAINE [Suspect]
     Active Substance: EPINEPHRINE\PRILOCAINE
     Indication: Dental local anaesthesia
     Dosage: 1.8 MILLILITER TOTAL CITANEST DENTAL OCTAPRESSIN 30 MG / ML + 0.54 MICROGRAMS / ML INJECTION FLUID,
     Dates: start: 20220315, end: 20220315
  2. XYLOCAINE [Suspect]
     Active Substance: LIDOCAINE HYDROCHLORIDE
     Indication: Dental local anaesthesia
     Dosage: 1.8 MILLILITER TOTAL XYLOCAIN DENTAL ADRENALINE 20 MG / ML + 12.5 MICROGRAMS / ML INJECTION FLUID, S
     Dates: start: 20220315

REACTIONS (1)
  - Anaphylactic shock [Recovered/Resolved]

NARRATIVE: CASE EVENT DATE: 20220315
